FAERS Safety Report 8141459-6 (Version None)
Quarter: 2012Q1

REPORT INFORMATION
  Report Type: 
  Country: None (occurrence: None)
  Receive Date: 20120216
  Receipt Date: 20120209
  Transmission Date: 20120608
  Serious: Yes (Other)
  Sender: FDA-Public Use
  Company Number: PHHY2012BR011975

PATIENT
  Age: 80 Year

DRUGS (2)
  1. ZOLEDRONOC ACID [Suspect]
     Dosage: 5 MG/100 ML
     Route: 042
  2. PREVENAR [Suspect]

REACTIONS (2)
  - TEMPORAL ARTERITIS [None]
  - BLINDNESS UNILATERAL [None]
